FAERS Safety Report 5378128-1 (Version None)
Quarter: 2007Q3

REPORT INFORMATION
  Report Type: 
  Country: None (occurrence: None)
  Receive Date: 20070705
  Receipt Date: 20070625
  Transmission Date: 20080115
  Serious: Yes (Other)
  Sender: FDA-Public Use
  Company Number: PHHO2007BR10816

PATIENT
  Age: 50 Year
  Sex: Female
  Weight: 82 kg

DRUGS (2)
  1. DIOVAN HCT [Suspect]
     Indication: HYPERTENSION
     Dosage: 160/12.5MG DAILY
     Route: 048
     Dates: start: 20050512, end: 20050517
  2. DIOVAN AMLO [Suspect]
     Dosage: 160/5MG

REACTIONS (5)
  - ARRHYTHMIA [None]
  - DRUG INEFFECTIVE [None]
  - HEADACHE [None]
  - INFLAMMATION [None]
  - MALAISE [None]
